FAERS Safety Report 6290720-9 (Version None)
Quarter: 2009Q3

REPORT INFORMATION
  Report Type: 
  Country: None (occurrence: None)
  Receive Date: 20090728
  Receipt Date: 20090728
  Transmission Date: 20100115
  Serious: No
  Sender: FDA-Public Use
  Company Number: None

PATIENT
  Sex: Female
  Weight: 47.6277 kg

DRUGS (1)
  1. BONIVA [Suspect]
     Indication: OSTEOPOROSIS
     Dosage: 1 TABLET MONTHLY PO
     Route: 048
     Dates: start: 20081001, end: 20090608

REACTIONS (9)
  - DRUG EFFECT DECREASED [None]
  - HEADACHE [None]
  - INADEQUATE ANALGESIA [None]
  - PAIN IN JAW [None]
  - PROCEDURAL PAIN [None]
  - QUALITY OF LIFE DECREASED [None]
  - REBOUND EFFECT [None]
  - SURGICAL FAILURE [None]
  - TOOTH EXTRACTION [None]
